FAERS Safety Report 5936302-7 (Version None)
Quarter: 2008Q4

REPORT INFORMATION
  Report Type: 
  Country: None (occurrence: None)
  Receive Date: 20081030
  Receipt Date: 20081023
  Transmission Date: 20090506
  Serious: Yes (Hospitalization)
  Sender: FDA-Public Use
  Company Number: JP-AVENTIS-200820096GDDC

PATIENT
  Age: 51 Year
  Sex: Male

DRUGS (15)
  1. RIFADIN [Suspect]
     Route: 048
     Dates: start: 20080914, end: 20080920
  2. ISONIAZID [Suspect]
     Indication: TUBERCULOSIS
  3. EBUTOL                             /00022301/ [Concomitant]
     Route: 048
     Dates: start: 20080914, end: 20080920
  4. PYRAZINAMIDE [Concomitant]
     Route: 048
     Dates: start: 20080914, end: 20080920
  5. FLAVITAN [Concomitant]
     Route: 048
     Dates: start: 20080914, end: 20080920
  6. EPALDOSE [Concomitant]
     Route: 048
     Dates: start: 20080912, end: 20080917
  7. VITAMEDIN                          /00274301/ [Concomitant]
     Dosage: DOSE: 4 DF
     Route: 048
     Dates: start: 20080912, end: 20080917
  8. OTHER UROLOGICALS, INCL ANTISPASMODICS [Concomitant]
     Route: 048
     Dates: start: 20080912, end: 20080917
  9. CEROCRAL [Concomitant]
     Route: 048
     Dates: start: 20080912, end: 20080917
  10. EXCEGRAN [Concomitant]
     Route: 048
     Dates: start: 20080912, end: 20080917
  11. UBRETID [Concomitant]
     Route: 048
     Dates: start: 20080912, end: 20080917
  12. ASPIRIN [Concomitant]
     Route: 048
     Dates: start: 20080912, end: 20080917
  13. BLOPRESS [Concomitant]
     Route: 048
     Dates: start: 20080912, end: 20080917
  14. NOVORAPID [Concomitant]
     Route: 058
  15. LANTUS [Concomitant]
     Route: 058

REACTIONS (1)
  - DIABETES MELLITUS INADEQUATE CONTROL [None]
